FAERS Safety Report 9912122 (Version 3)
Quarter: 2014Q2

REPORT INFORMATION
  Report Type: Spontaneous
  Country: IT (occurrence: IT)
  Receive Date: 20140219
  Receipt Date: 20140415
  Transmission Date: 20141212
  Serious: Yes (Other)
  Sender: FDA-Public Use
  Company Number: IT-BRISTOL-MYERS SQUIBB COMPANY-20184370

PATIENT
  Sex: Male

DRUGS (17)
  1. ORENCIA FOR INJ 250 MG/VIAL [Suspect]
     Indication: RHEUMATOID ARTHRITIS
     Dosage: 01JAN2009 TO 26NOV13 250 MG?750 MG?01JN09-26NV13?1JN99-7FEB14?POWDER FOR INJECTION
     Route: 042
     Dates: start: 20090201, end: 20131126
  2. METHOTREXATE [Suspect]
     Indication: RHEUMATOID ARTHRITIS
     Dosage: 15MG/2ML INJECTION SOLUTION^ DOSAGE/
     Route: 030
     Dates: start: 20090101, end: 20140207
  3. PERINDOPRIL [Concomitant]
     Indication: HYPERTENSION
     Route: 048
     Dates: start: 20110101, end: 20140219
  4. OMEPRAZOLE [Concomitant]
     Indication: PROPHYLAXIS
     Dosage: CAPS
     Route: 048
     Dates: start: 20110101, end: 20140219
  5. VENITRIN [Concomitant]
     Indication: ISCHAEMIC CARDIOMYOPATHY
     Dosage: TRANSDERMAL PATCHES
     Route: 062
     Dates: start: 20110101, end: 20140219
  6. DELTACORTENE [Concomitant]
     Indication: RHEUMATOID ARTHRITIS
     Dosage: TABS
     Route: 048
     Dates: start: 20110101, end: 20140219
  7. ESAPENT [Concomitant]
     Indication: DYSLIPIDAEMIA
     Dosage: CAPS 2 MG ORALLY
     Route: 048
     Dates: start: 20110101, end: 20140219
  8. CARDICOR [Concomitant]
     Indication: MYOCARDIAL ISCHAEMIA
     Dosage: TABS
     Route: 048
     Dates: start: 20110101, end: 20140219
  9. FOLINA [Concomitant]
     Dosage: 10 MG CAPS
     Route: 048
     Dates: start: 20110101, end: 20140219
  10. METFONORM [Concomitant]
     Indication: TYPE 2 DIABETES MELLITUS
     Dosage: 500 MG TABS
     Route: 048
     Dates: start: 20110101, end: 20140219
  11. VALIUM [Concomitant]
     Dosage: 1 DF= 5 MG/ML ORAL DROPS SOLUTION
     Route: 048
     Dates: start: 20110101, end: 20140219
  12. VOLTAREN [Concomitant]
     Indication: RHEUMATOID ARTHRITIS
     Dosage: TABS
     Route: 048
     Dates: start: 20110101, end: 20140219
  13. TACHIPIRINA [Concomitant]
     Indication: RHEUMATOID ARTHRITIS
     Dosage: TABS
     Route: 048
     Dates: start: 20110101, end: 20140219
  14. CRESTOR [Concomitant]
     Indication: DYSLIPIDAEMIA
     Dosage: TABS
     Route: 048
     Dates: start: 20110101, end: 20140219
  15. LASIX [Concomitant]
     Indication: MYOCARDIAL ISCHAEMIA
     Dosage: 25 MG TABS
     Route: 048
     Dates: start: 20110101, end: 20140219
  16. LYRICA [Concomitant]
     Indication: NEUROPATHY PERIPHERAL
     Dosage: CAPS
     Route: 048
     Dates: start: 20110101, end: 20140219
  17. FERRO-GRADUMET [Concomitant]
     Indication: IRON DEFICIENCY ANAEMIA
     Dosage: TABS
     Route: 048
     Dates: start: 20110101, end: 20140219

REACTIONS (2)
  - Bronchopneumonia [Recovered/Resolved]
  - Atrial fibrillation [Recovered/Resolved]
